FAERS Safety Report 4846894-7 (Version None)
Quarter: 2005Q4

REPORT INFORMATION
  Report Type: 
  Country: None (occurrence: None)
  Receive Date: 20051202
  Receipt Date: 20051125
  Transmission Date: 20060501
  Serious: Yes (Death, Other)
  Sender: FDA-Public Use
  Company Number: 2005JP002283

PATIENT
  Age: 73 Year
  Sex: Male
  Weight: 74 kg

DRUGS (3)
  1. FUNGUARD(MICAFUNGIN INJECTION) [Suspect]
     Indication: RESPIRATORY MONILIASIS
     Dosage: 100 MG, UID/QD, IV DRIP
     Route: 041
     Dates: start: 20050616, end: 20050622
  2. TIENAM/SWE(IMIPENEM, CILASTATIN) INJECTION [Suspect]
     Indication: RESPIRATORY MONILIASIS
     Dosage: 500 MG, D, IV NOS
     Route: 042
     Dates: end: 20050622
  3. TARGOCID [Suspect]
     Dosage: 100 MG, D, IV NOS
     Route: 042
     Dates: start: 20050617, end: 20050101

REACTIONS (3)
  - CARDIAC FAILURE [None]
  - DISEASE PROGRESSION [None]
  - HYPERBILIRUBINAEMIA [None]
